FAERS Safety Report 7493371-3 (Version None)
Quarter: 2011Q2

REPORT INFORMATION
  Report Type: 
  Country: None (occurrence: None)
  Receive Date: 20110520
  Receipt Date: 20110509
  Transmission Date: 20111010
  Serious: Yes (Hospitalization, Other)
  Sender: FDA-Public Use
  Company Number: US-BAYER-201018633NA

PATIENT
  Age: 28 Year
  Sex: Female
  Weight: 77.098 kg

DRUGS (13)
  1. NAPROXEN (ALEVE) [Concomitant]
     Dosage: OCCASIONALLY
  2. CLONAZEPAM [Concomitant]
     Dosage: 0.5 MG, PRN
  3. ZOLOFT [Concomitant]
  4. KEFLEX [Concomitant]
     Indication: PHARYNGITIS STREPTOCOCCAL
     Dosage: UNK
     Dates: start: 20091101
  5. KEFLEX [Concomitant]
     Dosage: 250 MG, Q4HR
     Dates: start: 20081129
  6. ZOLOFT [Concomitant]
     Dosage: 50 MG, QD
  7. CEFACLOR [Concomitant]
  8. YASMIN [Suspect]
     Indication: PRODUCT USED FOR UNKNOWN INDICATION
     Dosage: AS USED DOSE: UNK
     Route: 048
     Dates: start: 20080401
  9. SERTRALINE HYDROCHLORIDE [Concomitant]
  10. CEPHALEXIN [Concomitant]
  11. YAZ [Suspect]
     Indication: CONTRACEPTION
  12. VICODIN [Concomitant]
  13. YAZ [Suspect]
     Indication: MENSTRUATION IRREGULAR
     Dosage: UNK
     Dates: start: 20080401, end: 20090801

REACTIONS (3)
  - CHOLECYSTITIS CHRONIC [None]
  - PANCREATITIS [None]
  - CHOLELITHIASIS [None]
